FAERS Safety Report 8361920-9 (Version None)
Quarter: 2012Q2

REPORT INFORMATION
  Report Type: 
  Country: None (occurrence: None)
  Receive Date: 20120515
  Receipt Date: 20120508
  Transmission Date: 20120825
  Serious: Yes (Death)
  Sender: FDA-Public Use
  Company Number: US-JNJFOC-20120509715

PATIENT

DRUGS (2)
  1. DOXORUBICIN HCL [Suspect]
     Indication: RENAL CELL CARCINOMA
     Route: 042
  2. GEMCITABINE [Suspect]
     Indication: RENAL CELL CARCINOMA
     Route: 042

REACTIONS (2)
  - CARDIAC DISORDER [None]
  - OFF LABEL USE [None]
